FAERS Safety Report 17841800 (Version 21)
Quarter: 2022Q4

REPORT INFORMATION
  Report Type: Spontaneous
  Country: US (occurrence: US)
  Receive Date: 20200529
  Receipt Date: 20221101
  Transmission Date: 20230113
  Serious: Yes (Other)
  Sender: FDA-Public Use
  Company Number: US-PFIZER INC-2014130743

PATIENT
  Age: 60 Year
  Sex: Female
  Weight: 62.8 kg

DRUGS (6)
  1. CALAN SR [Suspect]
     Active Substance: VERAPAMIL HYDROCHLORIDE
     Dosage: 480 MG (2 TABLETS), DAILY
     Route: 048
  2. CALAN SR [Suspect]
     Active Substance: VERAPAMIL HYDROCHLORIDE
     Dosage: 240 MG
     Route: 048
  3. CALAN SR [Suspect]
     Active Substance: VERAPAMIL HYDROCHLORIDE
     Dosage: 240 MG, (2 DF, DAILY 360 TABS)
     Route: 048
  4. CALAN SR [Suspect]
     Active Substance: VERAPAMIL HYDROCHLORIDE
     Dosage: 240 MG, 2X/DAY
  5. INSULIN PORK\INSULIN PURIFIED PORK [Concomitant]
     Active Substance: INSULIN PORK\INSULIN PURIFIED PORK
     Indication: Type 1 diabetes mellitus
     Dosage: TAKES 6-10 PLUS INJECTIONS, DAILY
  6. INSULIN PORK\INSULIN PURIFIED PORK [Concomitant]
     Active Substance: INSULIN PORK\INSULIN PURIFIED PORK
     Indication: Type 1 diabetes mellitus
     Dosage: 6 TO 10 PLUS INJECTIONS, DAILY

REACTIONS (32)
  - Amyotrophic lateral sclerosis [Not Recovered/Not Resolved]
  - Back injury [Unknown]
  - Blindness [Unknown]
  - Blood glucose fluctuation [Unknown]
  - Blood pressure fluctuation [Unknown]
  - Fall [Unknown]
  - Loss of consciousness [Not Recovered/Not Resolved]
  - Progressive multiple sclerosis [Not Recovered/Not Resolved]
  - Spinal column injury [Unknown]
  - Syncope [Unknown]
  - Visual impairment [Not Recovered/Not Resolved]
  - Blood glucose decreased [Unknown]
  - Thrombosis [Unknown]
  - Asthenia [Unknown]
  - Diarrhoea [Unknown]
  - Drug specific antibody present [Unknown]
  - Dysphonia [Unknown]
  - Dyspnoea [Unknown]
  - Dysphonia [Unknown]
  - Dysstasia [Unknown]
  - Fatigue [Unknown]
  - Gait disturbance [Unknown]
  - Hypoacusis [Unknown]
  - Malaise [Unknown]
  - Memory impairment [Unknown]
  - Pain [Unknown]
  - Tremor [Unknown]
  - Product prescribing error [Unknown]
  - Varicose vein [Unknown]
  - Cerebral disorder [Unknown]
  - Spinal disorder [Unknown]
  - Gastroenteritis viral [Unknown]

NARRATIVE: CASE EVENT DATE: 20190101
